FAERS Safety Report 25557272 (Version 2)
Quarter: 2025Q3

REPORT INFORMATION
  Report Type: Spontaneous
  Country: US (occurrence: US)
  Receive Date: 20250715
  Receipt Date: 20250715
  Transmission Date: 20251021
  Serious: No
  Sender: NOVO NORDISK
  Company Number: US-NOVOPROD-1346226

PATIENT
  Age: 66 Year
  Sex: Female

DRUGS (2)
  1. OZEMPIC [Suspect]
     Active Substance: SEMAGLUTIDE
     Indication: Weight control
     Dosage: 0.5MG WEEKLY
     Route: 058
     Dates: start: 202312
  2. OZEMPIC [Suspect]
     Active Substance: SEMAGLUTIDE
     Indication: Weight control
     Dosage: 0.25
     Route: 058
     Dates: start: 20230914, end: 202312

REACTIONS (4)
  - Influenza [Recovered/Resolved]
  - Nausea [Recovered/Resolved]
  - Product use in unapproved indication [Not Recovered/Not Resolved]
  - Inappropriate schedule of product administration [Unknown]
